FAERS Safety Report 4940701-X (Version None)
Quarter: 2006Q1

REPORT INFORMATION
  Report Type: 
  Country: None (occurrence: None)
  Receive Date: 20060313
  Receipt Date: 20060223
  Transmission Date: 20060701
  Serious: No
  Sender: FDA-Public Use
  Company Number: BE-BOEHRINGER INGELHEIM PHARMACEUTICALS, INC.-2006-DE-01078BY

PATIENT

DRUGS (1)
  1. KINZALMONO [Suspect]
     Route: 065

REACTIONS (4)
  - BLOOD CREATININE INCREASED [None]
  - BLOOD UREA INCREASED [None]
  - ELECTROLYTE IMBALANCE [None]
  - RENAL IMPAIRMENT [None]
